FAERS Safety Report 18839236 (Version 1)
Quarter: 2021Q1

REPORT INFORMATION
  Report Type: Spontaneous
  Country: CH (occurrence: CH)
  Receive Date: 20210203
  Receipt Date: 20210203
  Transmission Date: 20210419
  Serious: Yes (Other)
  Sender: FDA-Public Use
  Company Number: CH-SA-2021SA029217

PATIENT
  Age: 71 Year
  Sex: Female

DRUGS (5)
  1. CISPLATIN. [Suspect]
     Active Substance: CISPLATIN
     Indication: NON-SMALL CELL LUNG CANCER
     Dosage: 170 MG, QD
     Route: 042
     Dates: start: 20121206, end: 20130117
  2. DOCETAXEL. [Suspect]
     Active Substance: DOCETAXEL
     Indication: METASTASES TO THE MEDIASTINUM
     Dosage: 145 MG
     Route: 042
     Dates: start: 20121206, end: 20130227
  3. ONBREZ BREEZHALER [Concomitant]
     Active Substance: INDACATEROL
     Dosage: UNK UNK, QD
     Route: 055
     Dates: start: 20140205
  4. DOCETAXEL. [Suspect]
     Active Substance: DOCETAXEL
     Indication: NON-SMALL CELL LUNG CANCER
  5. CISPLATIN. [Suspect]
     Active Substance: CISPLATIN
     Indication: METASTASES TO THE MEDIASTINUM

REACTIONS (1)
  - Basal cell carcinoma [Recovered/Resolved]

NARRATIVE: CASE EVENT DATE: 20200702
